FAERS Safety Report 25039693 (Version 1)
Quarter: 2025Q1

REPORT INFORMATION
  Report Type: Spontaneous
  Country: US (occurrence: US)
  Receive Date: 20250305
  Receipt Date: 20250305
  Transmission Date: 20250409
  Serious: Yes (Hospitalization, Disabling, Other)
  Sender: TAKEDA
  Company Number: US-TAKEDA-2025TUS022249

PATIENT
  Age: 62 Year
  Sex: Male

DRUGS (27)
  1. METHOTREXATE [Suspect]
     Active Substance: METHOTREXATE
     Indication: Product used for unknown indication
  2. METHOTREXATE [Suspect]
     Active Substance: METHOTREXATE
  3. ULORIC [Suspect]
     Active Substance: FEBUXOSTAT
     Indication: Product used for unknown indication
  4. ULORIC [Suspect]
     Active Substance: FEBUXOSTAT
     Dosage: 40 MILLIGRAM, QD
     Dates: start: 20240827
  5. COLCHICINE [Suspect]
     Active Substance: COLCHICINE
     Indication: Product used for unknown indication
  6. KRYSTEXXA [Suspect]
     Active Substance: PEGLOTICASE
     Indication: Gouty tophus
     Dosage: 8 MILLIGRAM, Q2WEEKS
     Dates: start: 202010
  7. KRYSTEXXA [Suspect]
     Active Substance: PEGLOTICASE
     Dosage: 8 MILLIGRAM, Q2WEEKS
     Dates: start: 20210721
  8. KRYSTEXXA [Suspect]
     Active Substance: PEGLOTICASE
     Dosage: 8 MILLIGRAM, Q2WEEKS
     Dates: start: 20210806, end: 20210806
  9. KRYSTEXXA [Suspect]
     Active Substance: PEGLOTICASE
     Dosage: 8 MILLIGRAM, Q2WEEKS
     Dates: start: 20241028, end: 20241028
  10. ALLOPURINOL [Suspect]
     Active Substance: ALLOPURINOL
     Indication: Hypersensitivity
     Dosage: 300 MILLIGRAM, QD
     Dates: start: 202008
  11. DELTASONE [Concomitant]
     Active Substance: PREDNISONE
  12. ELIQUIS [Concomitant]
     Active Substance: APIXABAN
  13. TYLENOL [Concomitant]
     Active Substance: ACETAMINOPHEN
  14. CATAPRES [Concomitant]
     Active Substance: CLONIDINE HYDROCHLORIDE
  15. NEURONTIN [Concomitant]
     Active Substance: GABAPENTIN
  16. DEMADEX [Concomitant]
     Active Substance: TORSEMIDE
  17. CLONIDINE [Concomitant]
     Active Substance: CLONIDINE
  18. PRINIVIL [Concomitant]
     Active Substance: LISINOPRIL
  19. JARDIANCE [Concomitant]
     Active Substance: EMPAGLIFLOZIN
  20. NORCO [Concomitant]
     Active Substance: ACETAMINOPHEN\HYDROCODONE BITARTRATE
  21. ACETAMINOPHEN [Concomitant]
     Active Substance: ACETAMINOPHEN
  22. REGLAN [Concomitant]
     Active Substance: METOCLOPRAMIDE HYDROCHLORIDE
  23. POTASSIUM [Concomitant]
     Active Substance: POTASSIUM
  24. NITROGLYCERIN [Concomitant]
     Active Substance: NITROGLYCERIN
  25. FOLVITE [Concomitant]
     Active Substance: FOLIC ACID
  26. FOLVITE [Concomitant]
     Active Substance: FOLIC ACID
  27. METOCLOPRAMIDE [Concomitant]
     Active Substance: METOCLOPRAMIDE

REACTIONS (26)
  - Pyrexia [Unknown]
  - Sepsis [Unknown]
  - Atrial fibrillation [Unknown]
  - Pulmonary embolism [Unknown]
  - Deep vein thrombosis [Unknown]
  - Chronic kidney disease [Unknown]
  - Renal failure [Unknown]
  - Disability [Unknown]
  - Drug hypersensitivity [Unknown]
  - Musculoskeletal stiffness [Unknown]
  - Drug intolerance [Unknown]
  - Gout [Unknown]
  - Osteoarthritis [Unknown]
  - Weight increased [Unknown]
  - Osteopenia [Unknown]
  - Skin atrophy [Unknown]
  - Electrocardiogram ST-T segment abnormal [Unknown]
  - Hypotension [Unknown]
  - Arthritis [Unknown]
  - Asthenia [Unknown]
  - Infusion related reaction [Unknown]
  - Hypertension [Unknown]
  - Pain [Unknown]
  - Glucose-6-phosphate dehydrogenase abnormal [Unknown]
  - Myalgia [Unknown]
  - Arthralgia [Unknown]
